FAERS Safety Report 6533688-X (Version None)
Quarter: 2010Q1

REPORT INFORMATION
  Report Type: 
  Country: None (occurrence: None)
  Receive Date: 20100108
  Receipt Date: 20100108
  Transmission Date: 20100710
  Serious: No
  Sender: FDA-Public Use
  Company Number: None

PATIENT
  Sex: Female
  Weight: 68.0396 kg

DRUGS (1)
  1. VIMPAT [Suspect]
     Indication: CONVULSION
     Dosage: 2 IN MORNING/ 3 1/2 NIGHT PO
     Route: 048
     Dates: start: 20080802, end: 20091231

REACTIONS (5)
  - ABDOMINAL PAIN UPPER [None]
  - AMNESIA [None]
  - DIZZINESS [None]
  - HEADACHE [None]
  - VISION BLURRED [None]
